FAERS Safety Report 16724244 (Version 1)
Quarter: 2019Q3

REPORT INFORMATION
  Report Type: Spontaneous
  Country: JP (occurrence: JP)
  Receive Date: 20190821
  Receipt Date: 20190821
  Transmission Date: 20191005
  Serious: Yes (Other)
  Sender: FDA-Public Use
  Company Number: JP-ELI_LILLY_AND_COMPANY-JP201908007311

PATIENT
  Age: 85 Year
  Sex: Female

DRUGS (1)
  1. CYRAMZA [Suspect]
     Active Substance: RAMUCIRUMAB
     Indication: HEPATOCELLULAR CARCINOMA
     Dosage: 466 MG, CYCLICAL
     Route: 042
     Dates: start: 20190625

REACTIONS (1)
  - Varicose ulceration [Not Recovered/Not Resolved]

NARRATIVE: CASE EVENT DATE: 20190806
